FAERS Safety Report 10378090 (Version 2)
Quarter: 2014Q4

REPORT INFORMATION
  Report Type: Spontaneous
  Country: AR (occurrence: None)
  Receive Date: 20140807
  Receipt Date: 20141017
  Transmission Date: 20150528
  Serious: Yes (Other)
  Sender: FDA-Public Use
  Company Number: KAD201408-000874

PATIENT
  Age: 59 Year
  Sex: Male

DRUGS (4)
  1. BMS 914143-INVESTIGATIONAL (PEGINTERFERON LAMBDA) [Suspect]
     Active Substance: PEGINTERFERON LAMBDA-1A
     Indication: CHRONIC HEPATITIS C
     Route: 058
     Dates: start: 20121221
  2. PLACEBO [Suspect]
     Active Substance: UNSPECIFIED INGREDIENT
     Indication: CHRONIC HEPATITIS C
     Route: 048
     Dates: start: 20121221
  3. CARVEDILOL (CARVEDILOL) [Concomitant]
     Active Substance: CARVEDILOL
  4. RIBAVIRIN (RIBAVIRIN) [Suspect]
     Active Substance: RIBAVIRIN
     Indication: CHRONIC HEPATITIS C
     Dosage: 400 MG EVERY 12 HOURS, ORAL
     Route: 048
     Dates: start: 20121221

REACTIONS (1)
  - Jaundice [None]

NARRATIVE: CASE EVENT DATE: 20130104
